FAERS Safety Report 6816818-1 (Version None)
Quarter: 2010Q3

REPORT INFORMATION
  Report Type: 
  Country: None (occurrence: None)
  Receive Date: 20100706
  Receipt Date: 20100622
  Transmission Date: 20110219
  Serious: Yes (Hospitalization)
  Sender: FDA-Public Use
  Company Number: US-ELI_LILLY_AND_COMPANY-US201006006372

PATIENT
  Sex: Female

DRUGS (4)
  1. FORTEO [Suspect]
     Indication: OSTEOPOROSIS
     Dosage: 20 UG, DAILY (1/D)
  2. ANTIHYPERTENSIVES [Concomitant]
  3. COUMADIN [Concomitant]
  4. ATIVAN [Concomitant]

REACTIONS (5)
  - ARTHROPATHY [None]
  - ATRIAL FIBRILLATION [None]
  - FALL [None]
  - ILL-DEFINED DISORDER [None]
  - ROTATOR CUFF SYNDROME [None]
